FAERS Safety Report 9387380 (Version 4)
Quarter: 2013Q3

REPORT INFORMATION
  Report Type: Spontaneous
  Country: US (occurrence: US)
  Receive Date: 20130708
  Receipt Date: 20130930
  Transmission Date: 20140515
  Serious: Yes (Hospitalization, Other)
  Sender: FDA-Public Use
  Company Number: US-009507513-2009SP021522

PATIENT
  Sex: Female
  Weight: 68.4 kg

DRUGS (5)
  1. NUVARING [Suspect]
     Indication: PRODUCT USED FOR UNKNOWN INDICATION
     Dates: start: 200612, end: 200707
  2. FEXOFENADINE HYDROCHLORIDE [Concomitant]
     Indication: PRODUCT USED FOR UNKNOWN INDICATION
     Dosage: 180 MG, UNK
     Route: 048
     Dates: start: 20060624
  3. AZITHROMYCIN [Concomitant]
     Indication: PRODUCT USED FOR UNKNOWN INDICATION
     Dosage: 250 MG, BID
     Route: 048
     Dates: start: 20070503
  4. PSEUDOVENT [Concomitant]
     Indication: PRODUCT USED FOR UNKNOWN INDICATION
     Dosage: 1 DF, BID
     Route: 048
     Dates: start: 20070503
  5. BUPROPION HYDROCHLORIDE [Concomitant]
     Indication: DEPRESSION
     Dosage: 75 MG, BID
     Route: 048
     Dates: start: 20070311

REACTIONS (14)
  - Caesarean section [Unknown]
  - Deep vein thrombosis [Recovered/Resolved]
  - Maternal exposure before pregnancy [Recovered/Resolved]
  - Transient ischaemic attack [Unknown]
  - Leiomyoma [Unknown]
  - Paraesthesia [Unknown]
  - Paraesthesia [Unknown]
  - Paraesthesia [Unknown]
  - Paraesthesia oral [Unknown]
  - Headache [Unknown]
  - Pain [Unknown]
  - Headache [Unknown]
  - Eye pain [Unknown]
  - Endometriosis ablation [Unknown]
